FAERS Safety Report 9660907 (Version 2)
Quarter: 2013Q4

REPORT INFORMATION
  Report Type: Spontaneous
  Country: JP (occurrence: JP)
  Receive Date: 20131031
  Receipt Date: 20131118
  Transmission Date: 20140711
  Serious: Yes (Hospitalization, Other)
  Sender: FDA-Public Use
  Company Number: JP-B.I. PHARMACEUTICALS,INC./RIDGEFIELD-2013-BI-34637GD

PATIENT
  Age: 32 Year
  Sex: Female
  Weight: 50 kg

DRUGS (2)
  1. SIFROL [Suspect]
     Indication: RESTLESS LEGS SYNDROME
     Dosage: 0.5 MG
     Route: 065
     Dates: start: 2009
  2. GABAPENTIN ENCARBIL [Suspect]
     Indication: RESTLESS LEGS SYNDROME
     Dosage: 300 MG

REACTIONS (7)
  - Talipes [Recovered/Resolved]
  - Restless legs syndrome [Recovered/Resolved]
  - Dyskinesia [Recovered/Resolved]
  - Arthralgia [Recovered/Resolved]
  - Muscle spasms [Recovered/Resolved]
  - Hypochromic anaemia [Recovered/Resolved]
  - Iron deficiency anaemia [Recovered/Resolved]
